FAERS Safety Report 9259622 (Version 1)
Quarter: 2013Q2

REPORT INFORMATION
  Report Type: Spontaneous
  Country: US (occurrence: US)
  Receive Date: 20130429
  Receipt Date: 20130429
  Transmission Date: 20140414
  Serious: Yes (Other)
  Sender: FDA-Public Use
  Company Number: US-UCBSA-084198

PATIENT
  Age: 31 Year
  Sex: Female

DRUGS (3)
  1. VIMPAT [Suspect]
     Dosage: 100 MG X 2 TAB IN THE AM AND 100 MG X 3 TABS IN THE PM
  2. KEPPRA XR [Suspect]
     Dosage: 500 MGX 4 TABS, FOR SEVERAL YEARS
  3. TEGRETOL [Concomitant]
     Dosage: 100 MG X 3 TABS IN AM, 3 TABS AT NOON AND 4 TABS AT BEDTIME

REACTIONS (6)
  - Convulsion [Unknown]
  - Fall [Unknown]
  - Head injury [Unknown]
  - Contusion [Recovering/Resolving]
  - Overdose [Unknown]
  - Inappropriate schedule of drug administration [Unknown]
